APPROVED DRUG PRODUCT: FELBATOL
Active Ingredient: FELBAMATE
Strength: 600MG/5ML
Dosage Form/Route: SUSPENSION;ORAL
Application: N020189 | Product #003
Applicant: MYLAN SPECIALTY LP
Approved: Jul 29, 1993 | RLD: Yes | RS: No | Type: DISCN